FAERS Safety Report 23377630 (Version 2)
Quarter: 2024Q1

REPORT INFORMATION
  Report Type: Spontaneous
  Country: TR (occurrence: TR)
  Receive Date: 20240108
  Receipt Date: 20240209
  Transmission Date: 20240410
  Serious: Yes (Hospitalization, Other)
  Sender: FDA-Public Use
  Company Number: TR-EXELTIS PHARMACEUTICAL HOLDING, S.L.-2312TR09371

PATIENT
  Age: 24 Year
  Sex: Female

DRUGS (1)
  1. SLYND [Suspect]
     Active Substance: DROSPIRENONE
     Indication: Polycystic ovarian syndrome
     Dosage: UNK
     Dates: start: 202308, end: 202312

REACTIONS (3)
  - Cholelithiasis [Recovered/Resolved]
  - Pancreatitis [Unknown]
  - Intentional product use issue [Unknown]
